FAERS Safety Report 10982737 (Version 1)
Quarter: 2015Q2

REPORT INFORMATION
  Report Type: Spontaneous
  Country: US (occurrence: None)
  Receive Date: 20150402
  Receipt Date: 20150402
  Transmission Date: 20150821
  Serious: No
  Sender: FDA-Public Use
  Company Number: None

PATIENT
  Sex: Female

DRUGS (15)
  1. SOVALDI [Suspect]
     Active Substance: SOFOSBUVIR
     Indication: CHRONIC HEPATITIS C
     Route: 048
     Dates: start: 20141219
  2. MYCOPHENOLIC [Concomitant]
     Active Substance: MYCOPHENOLIC ACID
  3. PANTOPRAZOLE [Concomitant]
     Active Substance: PANTOPRAZOLE SODIUM
  4. Q-PAP [Concomitant]
     Active Substance: ACETAMINOPHEN
  5. TACROLIMUS. [Concomitant]
     Active Substance: TACROLIMUS
  6. NEXIUM [Concomitant]
     Active Substance: ESOMEPRAZOLE MAGNESIUM
  7. METOPROLOL ER SUCCINATE [Concomitant]
     Active Substance: METOPROLOL SUCCINATE
  8. LACTULOSE. [Concomitant]
     Active Substance: LACTULOSE
  9. RIBASPHERE [Suspect]
     Active Substance: RIBAVIRIN
     Indication: CHRONIC HEPATITIS C
     Route: 048
     Dates: start: 20141219
  10. NYSTATIN. [Concomitant]
     Active Substance: NYSTATIN
  11. TRAMADOL [Concomitant]
     Active Substance: TRAMADOL
  12. ASPIRIN. [Concomitant]
     Active Substance: ASPIRIN
  13. MAG OXIDE [Concomitant]
     Active Substance: MAGNESIUM OXIDE
  14. OMEPRAZOLE. [Concomitant]
     Active Substance: OMEPRAZOLE
  15. LEVOTHYROXINE [Concomitant]
     Active Substance: LEVOTHYROXINE

REACTIONS (1)
  - Headache [None]
